FAERS Safety Report 5219617-X (Version None)
Quarter: 2007Q1

REPORT INFORMATION
  Report Type: 
  Country: None (occurrence: None)
  Receive Date: 20070125
  Receipt Date: 20070117
  Transmission Date: 20070707
  Serious: Yes (Hospitalization, Other)
  Sender: FDA-Public Use
  Company Number: US-PFIZER INC-2006139978

PATIENT
  Sex: Male
  Weight: 76.2 kg

DRUGS (7)
  1. TIKOSYN [Suspect]
     Indication: ATRIAL FIBRILLATION
  2. TIAZAC [Concomitant]
  3. LISINOPRIL [Concomitant]
  4. WARFARIN SODIUM [Concomitant]
  5. GEMFIBROZIL [Concomitant]
  6. OXYBUTYNIN [Concomitant]
  7. DRUG, UNSPECIFIED [Concomitant]

REACTIONS (2)
  - CARCINOID SYNDROME [None]
  - DIARRHOEA [None]
